FAERS Safety Report 23974650 (Version 1)
Quarter: 2024Q2

REPORT INFORMATION
  Report Type: Spontaneous
  Country: JP (occurrence: JP)
  Receive Date: 20240614
  Receipt Date: 20240614
  Transmission Date: 20240715
  Serious: Yes (Life-Threatening, Hospitalization)
  Sender: FDA-Public Use
  Company Number: JP-MOCHP-A20214647

PATIENT
  Sex: Female
  Weight: 3 kg

DRUGS (4)
  1. LEXAPRO [Suspect]
     Active Substance: ESCITALOPRAM OXALATE
     Indication: Exposure during pregnancy
     Dosage: 20 003
     Route: 064
     Dates: start: 20211101, end: 20211102
  2. CHLORPROMAZINE [Suspect]
     Active Substance: CHLORPROMAZINE
     Indication: Exposure during pregnancy
     Dosage: 25 003
     Route: 064
     Dates: start: 20211031, end: 20211101
  3. ZOLPIDEM TARTRATE [Suspect]
     Active Substance: ZOLPIDEM TARTRATE
     Indication: Exposure during pregnancy
     Dosage: 5 003
     Route: 064
     Dates: start: 20211031, end: 20211101
  4. DAYVIGO [Concomitant]
     Active Substance: LEMBOREXANT
     Indication: Exposure during pregnancy
     Dosage: 5 003
     Route: 064
     Dates: end: 20211031

REACTIONS (3)
  - Drug withdrawal syndrome neonatal [Recovered/Resolved]
  - Pulmonary hypertension [Recovered/Resolved]
  - Foetal exposure during pregnancy [Unknown]

NARRATIVE: CASE EVENT DATE: 20211102
